FAERS Safety Report 7216160-3 (Version None)
Quarter: 2011Q1

REPORT INFORMATION
  Report Type: 
  Country: None (occurrence: None)
  Receive Date: 20110107
  Receipt Date: 20101222
  Transmission Date: 20110831
  Serious: No
  Sender: FDA-Public Use
  Company Number: US-ROXANE LABORATORIES, INC.-2011-RO-00011RO

PATIENT
  Sex: Male
  Weight: 63 kg

DRUGS (4)
  1. LAMICTAL [Suspect]
     Route: 048
  2. LITHIUM CARBONATE [Suspect]
     Indication: DEPRESSION
     Dosage: 1200 MG
     Route: 048
     Dates: start: 20100601
  3. LITHIUM CARBONATE [Suspect]
     Dosage: 60 MG
     Route: 048
     Dates: end: 20100601
  4. LORAZEPAM [Suspect]
     Indication: ANXIETY
     Dosage: 1.5 MG
     Route: 048
     Dates: start: 20100601

REACTIONS (3)
  - CLUMSINESS [None]
  - AMNESIA [None]
  - DRUG SCREEN FALSE POSITIVE [None]
